FAERS Safety Report 8234092-9 (Version None)
Quarter: 2012Q1

REPORT INFORMATION
  Report Type: 
  Country: None (occurrence: None)
  Receive Date: 20120326
  Receipt Date: 20120326
  Transmission Date: 20120608
  Serious: No
  Sender: FDA-Public Use
  Company Number: None

PATIENT
  Age: 18 Year
  Sex: Male
  Weight: 81.646 kg

DRUGS (1)
  1. SERTRALINE HYDROCHLORIDE [Suspect]
     Indication: SOCIAL PHOBIA
     Dosage: 250 MG
     Route: 048
     Dates: start: 20101001, end: 20110515

REACTIONS (3)
  - ANXIETY [None]
  - DYSTONIA [None]
  - DISTURBANCE IN ATTENTION [None]
